FAERS Safety Report 4281845-8 (Version None)
Quarter: 2004Q1

REPORT INFORMATION
  Report Type: 
  Country: None (occurrence: None)
  Receive Date: 20040107
  Receipt Date: 20030609
  Transmission Date: 20041129
  Serious: Yes (Other)
  Sender: FDA-Public Use
  Company Number: A03200301258

PATIENT
  Age: 74 Year
  Sex: Male
  Weight: 84.8226 kg

DRUGS (2)
  1. ARIXTRA [Suspect]
     Indication: JOINT ARTHROPLASTY
     Dosage: SUBCUTANEOUS
     Route: 058
     Dates: start: 20030408, end: 20030401
  2. ARIXTRA [Suspect]
     Indication: THROMBOSIS PROPHYLAXIS
     Dosage: SUBCUTANEOUS
     Route: 058
     Dates: start: 20030408, end: 20030401

REACTIONS (1)
  - POST PROCEDURAL HAEMORRHAGE [None]
